FAERS Safety Report 9297073 (Version 3)
Quarter: 2015Q4

REPORT INFORMATION
  Report Type: Spontaneous
  Country: US (occurrence: US)
  Receive Date: 20130520
  Receipt Date: 20151105
  Transmission Date: 20160305
  Serious: Yes (Hospitalization, Other)
  Sender: FDA-Public Use
  Company Number: US-BRISTOL-MYERS SQUIBB COMPANY-18876318

PATIENT
  Sex: Male
  Weight: 111 kg

DRUGS (3)
  1. ZEGERID                            /00661201/ [Concomitant]
     Active Substance: OMEPRAZOLE
     Indication: PRODUCT USED FOR UNKNOWN INDICATION
     Dosage: 1 DF, BID 40-110MG
     Route: 048
  2. KLONOPIN [Concomitant]
     Active Substance: CLONAZEPAM
     Indication: PRODUCT USED FOR UNKNOWN INDICATION
     Dosage: 1 MG, UNK
     Route: 048
  3. ABILIFY [Suspect]
     Active Substance: ARIPIPRAZOLE
     Indication: AFFECTIVE DISORDER
     Dosage: 10 MG, UNK
     Route: 065
     Dates: end: 201207

REACTIONS (24)
  - Diabetes mellitus [Unknown]
  - Hypertension [Recovered/Resolved]
  - Vitamin D deficiency [Unknown]
  - Encephalopathy [Unknown]
  - Headache [Recovered/Resolved]
  - Hypoglycaemia [Unknown]
  - Meniscus injury [Unknown]
  - Sinusitis [Unknown]
  - Dizziness [Unknown]
  - Off label use [Unknown]
  - Depression [Unknown]
  - Weight increased [Unknown]
  - Hyperlipidaemia [Recovering/Resolving]
  - Nausea [Unknown]
  - Pharyngitis streptococcal [Unknown]
  - Visual impairment [Unknown]
  - Vomiting [Unknown]
  - Diarrhoea [Unknown]
  - Neuropathy peripheral [Recovering/Resolving]
  - Erectile dysfunction [Unknown]
  - Orthostatic hypotension [Unknown]
  - Fatigue [Unknown]
  - Hepatic steatosis [Unknown]
  - Suicidal ideation [Unknown]
